FAERS Safety Report 25405158 (Version 2)
Quarter: 2025Q2

REPORT INFORMATION
  Report Type: Report from Study
  Country: CA (occurrence: CA)
  Receive Date: 20250606
  Receipt Date: 20250611
  Transmission Date: 20250717
  Serious: Yes (Death)
  Sender: ALEXION PHARMACEUTICALS
  Company Number: CA-AstraZeneca-CH-00885488A

PATIENT

DRUGS (13)
  1. SOLIRIS [Suspect]
     Active Substance: ECULIZUMAB
     Indication: Atypical haemolytic uraemic syndrome
     Dosage: 900 MILLIGRAM, QW
  2. SOLIRIS [Suspect]
     Active Substance: ECULIZUMAB
  3. SOLIRIS [Suspect]
     Active Substance: ECULIZUMAB
     Dosage: 1200 MILLIGRAM, Q2W
  4. SOLIRIS [Suspect]
     Active Substance: ECULIZUMAB
     Dosage: 1200 MILLIGRAM, QMONTH
  5. DOMPERIDONE [Concomitant]
     Active Substance: DOMPERIDONE
  6. LABETALOL [Concomitant]
     Active Substance: LABETALOL
  7. DEXILANT [Concomitant]
     Active Substance: DEXLANSOPRAZOLE
  8. VENLAFAXINE [Concomitant]
     Active Substance: VENLAFAXINE HYDROCHLORIDE
  9. Ipravent [Concomitant]
  10. MOMETASONE [Concomitant]
     Active Substance: MOMETASONE
  11. TOPICORT [Concomitant]
     Active Substance: DESOXIMETASONE
  12. Prochlorazine [Concomitant]
  13. APIXABAN [Concomitant]
     Active Substance: APIXABAN
     Route: 065

REACTIONS (1)
  - Brain stem haemorrhage [Fatal]
